FAERS Safety Report 9847147 (Version 1)
Quarter: 2013Q4

REPORT INFORMATION
  Report Type: Spontaneous
  Country: US (occurrence: None)
  Receive Date: 20131223
  Receipt Date: 20131223
  Transmission Date: 20140711
  Serious: Yes (Other)
  Sender: FDA-Public Use
  Company Number: SYM-2013-11171

PATIENT
  Age: 53 Year
  Sex: Male

DRUGS (1)
  1. XENAZINE (TETRABENAZINE) (12.5 MILLIGRAM, TABLET) (TETRABENAZINE) [Suspect]
     Indication: HUNTINGTON^S DISEASE
     Dosage: TWO TABLETS IN THE MORNING AND ONE TABLET IN AFTERNOON AND ONE IN THE EVENING, ORAL
     Route: 048

REACTIONS (12)
  - Neuroleptic malignant syndrome [None]
  - Pyrexia [None]
  - Musculoskeletal stiffness [None]
  - Mental impairment [None]
  - Heart rate irregular [None]
  - Hyperhidrosis [None]
  - Memory impairment [None]
  - Balance disorder [None]
  - Initial insomnia [None]
  - Sleep disorder [None]
  - Diarrhoea [None]
  - Vomiting [None]
